FAERS Safety Report 21699874 (Version 1)
Quarter: 2022Q4

REPORT INFORMATION
  Report Type: Report from Study
  Country: IT (occurrence: IT)
  Receive Date: 20221208
  Receipt Date: 20221208
  Transmission Date: 20230113
  Serious: Yes (Hospitalization)
  Sender: FDA-Public Use
  Company Number: None

PATIENT
  Age: 55 Year
  Sex: Male

DRUGS (3)
  1. QUETIAPINE [Suspect]
     Active Substance: QUETIAPINE
     Dates: start: 20221001, end: 20221001
  2. METHADONE HYDROCHLORIDE [Suspect]
     Active Substance: METHADONE HYDROCHLORIDE
     Dates: start: 20221001, end: 20221001
  3. RIVOTRIL [Suspect]
     Active Substance: CLONAZEPAM
     Dates: start: 20221001, end: 20221001

REACTIONS (2)
  - Sopor [Recovering/Resolving]
  - Drug abuse [Unknown]

NARRATIVE: CASE EVENT DATE: 20221001
